FAERS Safety Report 10040772 (Version 1)
Quarter: 2014Q1

REPORT INFORMATION
  Report Type: Spontaneous
  Country: US (occurrence: None)
  Receive Date: 20140326
  Receipt Date: 20140326
  Transmission Date: 20141002
  Serious: Yes (Other)
  Sender: FDA-Public Use
  Company Number: None

PATIENT
  Age: 3 Year
  Sex: Female
  Weight: 15.42 kg

DRUGS (1)
  1. AUGMENTIN [Suspect]
     Dates: start: 20140311

REACTIONS (4)
  - Urticaria [None]
  - Pruritus generalised [None]
  - Hypersensitivity [None]
  - Product quality issue [None]
